FAERS Safety Report 14951139 (Version 6)
Quarter: 2019Q1

REPORT INFORMATION
  Report Type: Spontaneous
  Country: PT (occurrence: PT)
  Receive Date: 20180530
  Receipt Date: 20190227
  Transmission Date: 20190417
  Serious: Yes (Hospitalization, Other)
  Sender: FDA-Public Use
  Company Number: PT-AUROBINDO-AUR-APL-2018-027957

PATIENT

DRUGS (10)
  1. AMOXICILLIN+CLAVULANIC ACID [Suspect]
     Active Substance: AMOXICILLIN\CLAVULANIC ACID
     Indication: ENDOCARDITIS
     Dosage: UNK
     Route: 042
  2. FLUCONAZOLE. [Suspect]
     Active Substance: FLUCONAZOLE
     Indication: CANDIDA INFECTION
     Dosage: 400 MILLIGRAM, ONCE A DAY
     Route: 042
  3. LINEZOLID. [Concomitant]
     Active Substance: LINEZOLID
     Indication: NOSOCOMIAL INFECTION
     Dosage: UNK
     Route: 065
  4. CIPROFLOXACIN. [Suspect]
     Active Substance: CIPROFLOXACIN
     Indication: ENDOCARDITIS CANDIDA
     Dosage: UNK
     Route: 065
  5. VANCOMYCIN [Suspect]
     Active Substance: VANCOMYCIN
     Indication: ENDOCARDITIS
     Dosage: UNK
     Route: 065
  6. VANCOMYCIN [Suspect]
     Active Substance: VANCOMYCIN
     Indication: ENDOCARDITIS CANDIDA
  7. GENTAMYCIN [Suspect]
     Active Substance: GENTAMICIN
     Indication: ENDOCARDITIS
     Dosage: UNK
     Route: 065
  8. TRUVADA [Concomitant]
     Active Substance: EMTRICITABINE\TENOFOVIR DISOPROXIL FUMARATE
     Indication: HIV INFECTION
     Dosage: UNK
     Route: 065
  9. AMPHOTERICIN B. [Concomitant]
     Active Substance: AMPHOTERICIN B
     Indication: CANDIDA INFECTION
     Dosage: UNK
     Route: 065
  10. GENTAMYCIN [Suspect]
     Active Substance: GENTAMICIN
     Indication: ENDOCARDITIS CANDIDA

REACTIONS (8)
  - Pulmonary valve disease [Unknown]
  - Mitral valve incompetence [Unknown]
  - Drug ineffective [Unknown]
  - Endocarditis candida [Recovered/Resolved]
  - Nosocomial infection [Unknown]
  - Aortic valve disease [Unknown]
  - Cardiac failure [Recovered/Resolved]
  - Condition aggravated [Recovered/Resolved]
